FAERS Safety Report 9990471 (Version 1)
Quarter: 2014Q1

REPORT INFORMATION
  Report Type: Report from Study
  Country: US (occurrence: US)
  Receive Date: 20140310
  Receipt Date: 20140310
  Transmission Date: 20141002
  Serious: No
  Sender: FDA-Public Use
  Company Number: US-ABBVIE-13P-163-1135048-00

PATIENT
  Age: 31 Year
  Sex: Male

DRUGS (5)
  1. HUMIRA [Suspect]
     Indication: CROHN^S DISEASE
     Dates: start: 20130529
  2. KLONOPIN [Concomitant]
     Indication: ANXIETY
     Dosage: 0.5MG TABLETS- 2MG ONCE DAILY
  3. CITALOPRAM [Concomitant]
     Indication: DEPRESSION
  4. STRATTERA [Concomitant]
     Indication: ATTENTION DEFICIT/HYPERACTIVITY DISORDER
  5. PREDNISONE [Concomitant]
     Indication: CROHN^S DISEASE

REACTIONS (5)
  - Rash [Recovered/Resolved]
  - Rash pruritic [Not Recovered/Not Resolved]
  - Erythema multiforme [Not Recovered/Not Resolved]
  - Blister [Not Recovered/Not Resolved]
  - Scab [Not Recovered/Not Resolved]
